FAERS Safety Report 21389587 (Version 1)
Quarter: 2022Q3

REPORT INFORMATION
  Report Type: Spontaneous
  Country: US (occurrence: US)
  Receive Date: 20220929
  Receipt Date: 20220929
  Transmission Date: 20221027
  Serious: Yes (Hospitalization)
  Sender: FDA-Public Use
  Company Number: US-MORPHOSYS US-2022-MOR002327-US

PATIENT
  Age: 73 Year
  Sex: Male

DRUGS (1)
  1. MONJUVI [Suspect]
     Active Substance: TAFASITAMAB-CXIX
     Indication: Product used for unknown indication
     Dosage: 840 MILLIGRAM ON DAYS 1, 4, 8, 15, AND 22 ON A 28 DAY CYCLE
     Dates: start: 20210726, end: 20210818

REACTIONS (2)
  - Chest pain [Unknown]
  - Panic attack [Unknown]

NARRATIVE: CASE EVENT DATE: 20210728
